FAERS Safety Report 4762166-3 (Version None)
Quarter: 2005Q3

REPORT INFORMATION
  Report Type: 
  Country: None (occurrence: None)
  Receive Date: 20050906
  Receipt Date: 20050906
  Transmission Date: 20060218
  Serious: No
  Sender: FDA-Public Use
  Company Number: None

PATIENT

DRUGS (2)
  1. VERSED [Suspect]
  2. EPHEDRINE 50 MG/ML [Suspect]

REACTIONS (1)
  - MEDICATION ERROR [None]
